FAERS Safety Report 23785413 (Version 1)
Quarter: 2024Q2

REPORT INFORMATION
  Report Type: Spontaneous
  Country: US (occurrence: US)
  Receive Date: 20240425
  Receipt Date: 20240425
  Transmission Date: 20240716
  Serious: No
  Sender: FDA-Public Use
  Company Number: US-ANIPHARMA-2023-US-026605

PATIENT
  Age: 71 Year
  Sex: Female

DRUGS (9)
  1. PROPAFENONE HYDROCHLORIDE [Suspect]
     Active Substance: PROPAFENONE HYDROCHLORIDE
     Indication: Atrial fibrillation
     Dosage: 1 TABLET THREE TIMES DAILY
     Route: 048
     Dates: start: 202308
  2. ASPIRIN [Concomitant]
     Active Substance: ASPIRIN
  3. DILTIAZEM [Concomitant]
     Active Substance: DILTIAZEM
  4. ALLOPURINOL [Concomitant]
     Active Substance: ALLOPURINOL
  5. LOSARTAN [Concomitant]
     Active Substance: LOSARTAN
  6. ELIQUIS [Concomitant]
     Active Substance: APIXABAN
  7. OMEPRAZOLE [Concomitant]
     Active Substance: OMEPRAZOLE
  8. LASIX [Concomitant]
     Active Substance: FUROSEMIDE
  9. TEMAZEPAM [Concomitant]
     Active Substance: TEMAZEPAM

REACTIONS (2)
  - Feeling abnormal [Recovered/Resolved]
  - Incorrect dosage administered [Recovered/Resolved]

NARRATIVE: CASE EVENT DATE: 20230801
